FAERS Safety Report 10346914 (Version 3)
Quarter: 2014Q3

REPORT INFORMATION
  Report Type: Spontaneous
  Country: US (occurrence: US)
  Receive Date: 20140729
  Receipt Date: 20140828
  Transmission Date: 20150326
  Serious: Yes (Other)
  Sender: FDA-Public Use
  Company Number: US-ASTRAZENECA-2014SE13002

PATIENT
  Age: 81 Year
  Sex: Male
  Weight: 65.3 kg

DRUGS (32)
  1. PRILOSEC [Suspect]
     Active Substance: OMEPRAZOLE MAGNESIUM
     Indication: GASTROOESOPHAGEAL REFLUX DISEASE
     Dosage: OMEPRAZOLE 20 MG DAILY
     Route: 048
     Dates: end: 201407
  2. TOPROL XL [Suspect]
     Active Substance: METOPROLOL SUCCINATE
     Indication: HEART RATE ABNORMAL
     Route: 048
     Dates: start: 201312
  3. TOPROL XL [Suspect]
     Active Substance: METOPROLOL SUCCINATE
     Indication: ARRHYTHMIA
     Route: 048
  4. XANAX [Concomitant]
     Active Substance: ALPRAZOLAM
     Indication: ANXIETY
     Dosage: HALF A 25 MG PILL TID
     Route: 048
     Dates: start: 2013
  5. TOPROL XL [Suspect]
     Active Substance: METOPROLOL SUCCINATE
     Indication: HEART RATE ABNORMAL
     Route: 048
  6. TOPROL XL [Suspect]
     Active Substance: METOPROLOL SUCCINATE
     Indication: BLOOD PRESSURE ABNORMAL
     Dosage: ONE AND ONE HALF TABLETS IN AM, ONE AT 2 PM AND ONE AND ONE HALF TABLETS IN PM
     Route: 048
     Dates: start: 20140218
  7. TOPROL XL [Suspect]
     Active Substance: METOPROLOL SUCCINATE
     Indication: HEART RATE ABNORMAL
     Route: 048
     Dates: start: 20140711
  8. ALPRAZOLAM. [Concomitant]
     Active Substance: ALPRAZOLAM
     Indication: ANXIETY
     Dosage: 0.25MG 1 TO 2 TIMES DAILY AS NEEDED
     Dates: start: 2013
  9. TOPROL XL [Suspect]
     Active Substance: METOPROLOL SUCCINATE
     Indication: HEART RATE ABNORMAL
     Dosage: METORROLOL SUCCINATE 75 MG TWO TIMES A DAY
     Route: 048
     Dates: start: 20140708
  10. TOPROL XL [Suspect]
     Active Substance: METOPROLOL SUCCINATE
     Indication: ARRHYTHMIA
     Route: 048
     Dates: start: 201312
  11. TOPROL XL [Suspect]
     Active Substance: METOPROLOL SUCCINATE
     Indication: ARRHYTHMIA
     Route: 048
     Dates: start: 2013, end: 20140711
  12. TOPROL XL [Suspect]
     Active Substance: METOPROLOL SUCCINATE
     Indication: BLOOD PRESSURE ABNORMAL
     Route: 048
     Dates: start: 20140711
  13. METROPROLOL TARTRATE [Suspect]
     Active Substance: METOPROLOL TARTRATE
     Route: 065
  14. ASPIRIN. [Concomitant]
     Active Substance: ASPIRIN
     Indication: CARDIOVASCULAR EVENT PROPHYLAXIS
  15. PRILOSEC [Suspect]
     Active Substance: OMEPRAZOLE MAGNESIUM
     Indication: GASTROOESOPHAGEAL REFLUX DISEASE
     Route: 048
     Dates: start: 2004
  16. TOPROL XL [Suspect]
     Active Substance: METOPROLOL SUCCINATE
     Indication: BLOOD PRESSURE ABNORMAL
     Route: 048
  17. TOPROL XL [Suspect]
     Active Substance: METOPROLOL SUCCINATE
     Indication: HEART RATE ABNORMAL
     Dosage: ONE AND ONE HALF TABLETS IN AM, ONE AT 2 PM AND ONE AND ONE HALF TABLETS IN PM
     Route: 048
     Dates: start: 20140218
  18. HYDROCHLORTHIAZIDE [Concomitant]
     Active Substance: HYDROCHLOROTHIAZIDE
     Indication: DIURETIC THERAPY
     Dosage: 12. 5 MG PRN
     Dates: start: 2013
  19. HYDROCHLOROTHIAZIDE. [Concomitant]
     Active Substance: HYDROCHLOROTHIAZIDE
     Indication: OEDEMA
     Route: 048
     Dates: start: 2011
  20. ALPRAZOLAM. [Concomitant]
     Active Substance: ALPRAZOLAM
     Indication: PANIC DISORDER
     Dosage: 0.25MG 1 TO 2 TIMES DAILY AS NEEDED
     Dates: start: 2013
  21. TOPROL XL [Suspect]
     Active Substance: METOPROLOL SUCCINATE
     Indication: BLOOD PRESSURE ABNORMAL
     Dosage: ONE AND ONE HALF TABLETS IN AM, ONE AT 2 PM AND ONE AND ONE HALF TABLETS IN PM
     Route: 048
  22. TOPROL XL [Suspect]
     Active Substance: METOPROLOL SUCCINATE
     Indication: ARRHYTHMIA
     Dosage: ONE AND ONE HALF TABLETS IN AM, ONE AT 2 PM AND ONE AND ONE HALF TABLETS IN PM
     Route: 048
  23. TOPROL XL [Suspect]
     Active Substance: METOPROLOL SUCCINATE
     Indication: HEART RATE ABNORMAL
     Route: 048
     Dates: start: 2013, end: 20140711
  24. TOPROL XL [Suspect]
     Active Substance: METOPROLOL SUCCINATE
     Indication: BLOOD PRESSURE ABNORMAL
     Route: 048
     Dates: start: 201312
  25. TOPROL XL [Suspect]
     Active Substance: METOPROLOL SUCCINATE
     Indication: HEART RATE ABNORMAL
     Dosage: ONE AND ONE HALF TABLETS IN AM, ONE AT 2 PM AND ONE AND ONE HALF TABLETS IN PM
     Route: 048
  26. TOPROL XL [Suspect]
     Active Substance: METOPROLOL SUCCINATE
     Indication: ARRHYTHMIA
     Dosage: ONE AND ONE HALF TABLETS IN AM, ONE AT 2 PM AND ONE AND ONE HALF TABLETS IN PM
     Route: 048
     Dates: start: 20140218
  27. TOPROL XL [Suspect]
     Active Substance: METOPROLOL SUCCINATE
     Indication: ARRHYTHMIA
     Route: 048
     Dates: start: 20140711
  28. TOPROL XL [Suspect]
     Active Substance: METOPROLOL SUCCINATE
     Indication: BLOOD PRESSURE ABNORMAL
     Dosage: METORROLOL SUCCINATE 75 MG TWO TIMES A DAY
     Route: 048
     Dates: start: 20140708
  29. TOPROL XL [Suspect]
     Active Substance: METOPROLOL SUCCINATE
     Indication: ARRHYTHMIA
     Dosage: METORROLOL SUCCINATE 75 MG TWO TIMES A DAY
     Route: 048
     Dates: start: 20140708
  30. TOPROL XL [Suspect]
     Active Substance: METOPROLOL SUCCINATE
     Indication: BLOOD PRESSURE ABNORMAL
     Route: 048
     Dates: start: 2013, end: 20140711
  31. DETROL LA [Concomitant]
     Active Substance: TOLTERODINE TARTRATE
     Indication: PROSTATECTOMY
     Dosage: 4 MG. DAILY
     Dates: start: 2004
  32. TOLTERODINE TARTRATE ER [Concomitant]
     Indication: URGE INCONTINENCE
     Route: 048
     Dates: start: 2004

REACTIONS (16)
  - Dyspepsia [Unknown]
  - Heart rate increased [Not Recovered/Not Resolved]
  - Intercepted drug dispensing error [None]
  - Breath holding [Unknown]
  - Anxiety [Unknown]
  - Depression [Not Recovered/Not Resolved]
  - Adverse event [Not Recovered/Not Resolved]
  - Panic disorder [Unknown]
  - Off label use [Not Recovered/Not Resolved]
  - Drug dispensing error [Unknown]
  - Epigastric discomfort [None]
  - Body height decreased [Unknown]
  - Intentional product misuse [Unknown]
  - Arrhythmia [Unknown]
  - Bone loss [Not Recovered/Not Resolved]
  - Insomnia [Not Recovered/Not Resolved]

NARRATIVE: CASE EVENT DATE: 2009
